FAERS Safety Report 5199456-9 (Version None)
Quarter: 2006Q4

REPORT INFORMATION
  Report Type: 
  Country: None (occurrence: None)
  Receive Date: 20061229
  Receipt Date: 20061220
  Transmission Date: 20070319
  Serious: Yes (Death, Hospitalization, Other)
  Sender: FDA-Public Use
  Company Number: 2006SP006842

PATIENT
  Age: 55 Year
  Sex: Male

DRUGS (7)
  1. TEMODAR [Suspect]
     Indication: ASTROCYTOMA
     Dosage: 75 MG, M2 QD; PO, 75 MG, MD, PO, 150 MG, M2, PO
     Route: 048
     Dates: start: 20060308, end: 20060428
  2. TEMODAR [Suspect]
     Indication: OLIGODENDROGLIOMA
     Dosage: 75 MG, M2 QD; PO, 75 MG, MD, PO, 150 MG, M2, PO
     Route: 048
     Dates: start: 20060308, end: 20060428
  3. TEMODAR [Suspect]
     Indication: ASTROCYTOMA
     Dosage: 75 MG, M2 QD; PO, 75 MG, MD, PO, 150 MG, M2, PO
     Route: 048
     Dates: start: 20060531, end: 20060627
  4. TEMODAR [Suspect]
     Indication: OLIGODENDROGLIOMA
     Dosage: 75 MG, M2 QD; PO, 75 MG, MD, PO, 150 MG, M2, PO
     Route: 048
     Dates: start: 20060531, end: 20060627
  5. TEMODAR [Suspect]
     Indication: ASTROCYTOMA
     Dosage: 75 MG, M2 QD; PO, 75 MG, MD, PO, 150 MG, M2, PO
     Route: 048
     Dates: start: 20060710, end: 20060724
  6. TEMODAR [Suspect]
     Indication: OLIGODENDROGLIOMA
     Dosage: 75 MG, M2 QD; PO, 75 MG, MD, PO, 150 MG, M2, PO
     Route: 048
     Dates: start: 20060710, end: 20060724
  7. RADIATION THERAPY [Concomitant]

REACTIONS (5)
  - ASTROCYTOMA [None]
  - DISEASE PROGRESSION [None]
  - NOSOCOMIAL INFECTION [None]
  - OLIGODENDROGLIOMA [None]
  - PANCYTOPENIA [None]
